FAERS Safety Report 9442536 (Version 1)
Quarter: 2013Q3

REPORT INFORMATION
  Report Type: Spontaneous
  Country: US (occurrence: None)
  Receive Date: 20130805
  Receipt Date: 20130805
  Transmission Date: 20140515
  Serious: Yes (Hospitalization)
  Sender: FDA-Public Use
  Company Number: None

PATIENT
  Age: 58 Year
  Sex: Male
  Weight: 89 kg

DRUGS (2)
  1. CEFTAROLINE [Suspect]
     Indication: VASCULAR OPERATION
     Route: 042
     Dates: start: 20130628, end: 20130722
  2. CEFTAROLINE [Suspect]
     Indication: GRAFT INFECTION
     Route: 042
     Dates: start: 20130628, end: 20130722

REACTIONS (1)
  - Leukopenia [None]
